FAERS Safety Report 8420825-5 (Version None)
Quarter: 2012Q2

REPORT INFORMATION
  Report Type: 
  Country: None (occurrence: None)
  Receive Date: 20120608
  Receipt Date: 20120606
  Transmission Date: 20120825
  Serious: Yes (Hospitalization, Other)
  Sender: FDA-Public Use
  Company Number: US-PFIZER INC-2012136517

PATIENT
  Sex: Male
  Weight: 90.703 kg

DRUGS (3)
  1. DILANTIN [Suspect]
     Indication: EPILEPSY
     Dosage: 100 MG, 3X/DAY
     Route: 048
     Dates: end: 20120501
  2. DEPAKOTE [Concomitant]
     Dosage: UNK
  3. DILANTIN [Suspect]
     Indication: CONVULSION

REACTIONS (1)
  - EPILEPSY [None]
